FAERS Safety Report 18233581 (Version 1)
Quarter: 2020Q3

REPORT INFORMATION
  Report Type: Spontaneous
  Country: US (occurrence: US)
  Receive Date: 20200904
  Receipt Date: 20200904
  Transmission Date: 20201103
  Serious: No
  Sender: FDA-Public Use
  Company Number: US-VELOXIS PHARMACEUTICALS-2020VELUS-000614

PATIENT
  Sex: Female

DRUGS (3)
  1. ENVARSUS XR [Suspect]
     Active Substance: TACROLIMUS
     Dosage: STRENGTH (4 MG)
     Route: 048
     Dates: start: 20200415
  2. ENVARSUS XR [Suspect]
     Active Substance: TACROLIMUS
     Indication: PRODUCT USED FOR UNKNOWN INDICATION
     Dosage: STRENGTH (0.75 MG)
     Route: 048
     Dates: start: 20200415
  3. ENVARSUS XR [Suspect]
     Active Substance: TACROLIMUS
     Dosage: STRENGTH (1 MG)
     Route: 048
     Dates: start: 20200415

REACTIONS (2)
  - Blood pressure increased [Not Recovered/Not Resolved]
  - Peripheral swelling [Not Recovered/Not Resolved]
